FAERS Safety Report 8513078-0 (Version None)
Quarter: 2012Q3

REPORT INFORMATION
  Report Type: 
  Country: None (occurrence: None)
  Receive Date: 20120705
  Receipt Date: 20120427
  Transmission Date: 20120928
  Serious: Yes (Hospitalization)
  Sender: FDA-Public Use
  Company Number: 2012MA007780

PATIENT
  Sex: Female

DRUGS (3)
  1. HYDROCHLOROTHIAZIDE [Suspect]
  2. PANTOPRAZOLE SODIUM [Suspect]
  3. VALSARTAN [Suspect]

REACTIONS (1)
  - HYPONATRAEMIA [None]
